FAERS Safety Report 16766651 (Version 4)
Quarter: 2020Q1

REPORT INFORMATION
  Report Type: Report from Study
  Country: None (occurrence: BR)
  Receive Date: 20190903
  Receipt Date: 20200212
  Transmission Date: 20200409
  Serious: Yes (Other)
  Sender: FDA-Public Use
  Company Number: BR-ABBVIE-19K-020-2620273-00

PATIENT
  Sex: Male
  Weight: 52 kg

DRUGS (3)
  1. HUMIRA [Suspect]
     Active Substance: ADALIMUMAB
     Route: 058
     Dates: start: 20190715, end: 201908
  2. HUMIRA [Suspect]
     Active Substance: ADALIMUMAB
     Route: 058
     Dates: start: 20190401, end: 2019
  3. HUMIRA [Suspect]
     Active Substance: ADALIMUMAB
     Indication: COLITIS ULCERATIVE
     Route: 058
     Dates: start: 20180401

REACTIONS (13)
  - Inflammation [Unknown]
  - Diarrhoea [Unknown]
  - Mass [Unknown]
  - Haematochezia [Not Recovered/Not Resolved]
  - Eye infection fungal [Unknown]
  - Drug ineffective [Unknown]
  - Haemorrhage [Unknown]
  - Immunodeficiency [Unknown]
  - Colitis ulcerative [Unknown]
  - Visual impairment [Unknown]
  - Abnormal faeces [Unknown]
  - Vision blurred [Unknown]
  - Blindness [Unknown]

NARRATIVE: CASE EVENT DATE: 2018
